FAERS Safety Report 9100137 (Version 1)
Quarter: 2013Q1

REPORT INFORMATION
  Report Type: Spontaneous
  Country: GR (occurrence: GR)
  Receive Date: 20130215
  Receipt Date: 20130215
  Transmission Date: 20140127
  Serious: Yes (Hospitalization)
  Sender: FDA-Public Use
  Company Number: GR-BRISTOL-MYERS SQUIBB COMPANY-17364688

PATIENT
  Age: 41 Year
  Sex: Female

DRUGS (2)
  1. APROVEL [Suspect]
     Indication: HYPERTENSION
     Dates: end: 20121029
  2. XOLAIR [Concomitant]
     Dosage: TWO INJECTIONS
     Dates: start: 20130201

REACTIONS (3)
  - Syncope [Recovered/Resolved]
  - Arthropathy [Recovered/Resolved]
  - Hypotension [Unknown]
